FAERS Safety Report 24685382 (Version 1)
Quarter: 2024Q4

REPORT INFORMATION
  Report Type: Report from Study
  Country: GB (occurrence: GB)
  Receive Date: 20241202
  Receipt Date: 20241202
  Transmission Date: 20250115
  Serious: Yes (Death)
  Sender: BAXTER
  Company Number: GB-BAXTER-2024BAX028398

PATIENT
  Age: 71 Year
  Sex: Male

DRUGS (14)
  1. SYNTHAMIN [Suspect]
     Active Substance: AMINO ACIDS
     Indication: Parenteral nutrition
     Dosage: (COMPONENT QTY: 8000.00 ML) 3500 ML TO RUN OVER 14 HOURS, 3 TIMES A WEEK
     Route: 065
     Dates: start: 20230321
  2. CERNEVIT [Suspect]
     Active Substance: VITAMINS
     Indication: Parenteral nutrition
     Dosage: (COMPONENT QTY: 40.00 ML) 3500 ML TO RUN OVER 14 HOURS, 3 TIMES A WEEK
     Route: 065
     Dates: start: 20230321
  3. DEXTROSE [Suspect]
     Active Substance: DEXTROSE MONOHYDRATE
     Indication: Medication dilution
     Dosage: (COMPONENT QTY: 5600.00 ML) 3500 ML TO RUN OVER 14 HOURS, 3 TIMES A WEEK
     Route: 065
     Dates: start: 20230321
  4. WATER FOR INJECTION [Suspect]
     Active Substance: WATER
     Indication: Medication dilution
     Dosage: (COMPONENT QTY: 45.00 ML) 3500 ML TO RUN OVER 14 HOURS, 3 TIMES A WEEK
     Route: 065
     Dates: start: 20230321
  5. WATER FOR INJECTION [Suspect]
     Active Substance: WATER
     Indication: Medication dilution
     Dosage: (WATER FOR TPN FORMULATIONS) (COMPONENT QTY: 13116.80 ML) 3500 ML TO RUN OVER 14 HOURS, 3 TIMES A WE
     Route: 065
     Dates: start: 20230321
  6. SODIUM CHLORIDE [Suspect]
     Active Substance: SODIUM CHLORIDE
     Indication: Medication dilution
     Dosage: (COMPONENT QTY: 280.00 ML) 3500 ML TO RUN OVER 14 HOURS, 3 TIMES A WEEK
     Route: 065
     Dates: start: 20230321
  7. IRON\MINERALS\POTASSIUM IOD\SODIUM FLUORIDE\SODIUM MOLYBDATE\SODIUM SE [Suspect]
     Active Substance: IRON\MINERALS\POTASSIUM IOD\SODIUM FLUORIDE\SODIUM MOLYBDATE\SODIUM SELENITE\ZINC
     Indication: Parenteral nutrition
     Dosage: (MANUFACTURER: LABORATOIRE AGUETTANT S.A.S.) (COMPONENT QTY: 80.00 ML) 3500 ML TO RUN OVER 14 HOURS,
     Route: 065
     Dates: start: 20230321
  8. CALCIUM CHLORIDE [Suspect]
     Active Substance: CALCIUM CHLORIDE
     Indication: Parenteral nutrition
     Dosage: (CALCIUM CHLORIDE 1 MMOL/ML) (COMPONENT QTY: 64.00 ML) 3500 ML TO RUN OVER 14 HOURS, 3 TIMES A WEEK
     Route: 065
     Dates: start: 20230321
  9. MAGNESIUM SULFATE [Suspect]
     Active Substance: MAGNESIUM SULFATE
     Indication: Parenteral nutrition
     Dosage: (MAGNESIUM SULPHATE 49.3% BAG) (COMPONENT QTY: 40.00 ML) 3500 ML TO RUN OVER 14 HOURS, 3 TIMES A WEE
     Route: 065
     Dates: start: 20230321
  10. POTASSIUM CHLORIDE [Suspect]
     Active Substance: POTASSIUM CHLORIDE
     Indication: Parenteral nutrition
     Dosage: (POTASSIUM CHLORIDE 22%) (COMPONENT QTY: 240.00 ML) 3500 ML TO RUN OVER 14 HOURS, 3 TIMES A WEEK
     Route: 065
     Dates: start: 20230321
  11. SODIUM GLYCEROPHOSPHATE [Suspect]
     Active Substance: SODIUM GLYCEROPHOSPHATE
     Indication: Parenteral nutrition
     Dosage: (SODIUM GLYCEROPHOSPHATE 30%) (COMPONENT QTY: 200.00 ML) 3500 ML TO RUN OVER 14 HOURS, 3 TIMES A WEE
     Route: 065
     Dates: start: 20230321
  12. POTASSIUM ACETATE [Suspect]
     Active Substance: POTASSIUM ACETATE
     Indication: Parenteral nutrition
     Dosage: (POTASSIUM ACETATE 4.9 G/10 ML) (COMPONENT QTY: 48.00 ML) 3500 ML TO RUN OVER 14 HOURS, 3 TIMES A WE
     Route: 065
     Dates: start: 20230321
  13. SODIUM ACETATE [Suspect]
     Active Substance: SODIUM ACETATE
     Indication: Parenteral nutrition
     Dosage: (SODIUM ACETATE 30% INJECTION) (COMPONENT QTY: 291.20 ML) 3500 ML TO RUN OVER 14 HOURS, 3 TIMES A WE
     Route: 065
     Dates: start: 20230321
  14. UNSPECIFIED INGREDIENT [Suspect]
     Active Substance: UNSPECIFIED INGREDIENT
     Route: 065

REACTIONS (4)
  - Respiratory rate increased [Fatal]
  - Dry mouth [Fatal]
  - Fatigue [Fatal]
  - Back pain [Fatal]

NARRATIVE: CASE EVENT DATE: 20241122
